FAERS Safety Report 9580255 (Version 1)
Quarter: 2013Q3

REPORT INFORMATION
  Report Type: Spontaneous
  Country: US (occurrence: None)
  Receive Date: 20130916
  Receipt Date: 20130916
  Transmission Date: 20140515
  Serious: Yes (Hospitalization, Other)
  Sender: FDA-Public Use
  Company Number: JPI-P-025108

PATIENT
  Age: 51 Year
  Sex: Male
  Weight: 62.6 kg

DRUGS (8)
  1. XYREM (500 MILLIGRAM/MILLILITERS, SOLUTION) (SODIUM OXYBATE) [Suspect]
     Indication: NARCOLEPSY
     Dosage: 4.5 GM (2.25 GM, 2 IN 1 D), ORAL
     Route: 048
     Dates: start: 20100820
  2. PRAMIPEXOLE DIHYDROCHLORIDE [Concomitant]
  3. MOMETASONE FUROATE, FORMOTEROL FUMARATE DIHYDRATE (AEROSOL FOR INHALATION) [Concomitant]
  4. ALBUTEROL SULFATE [Concomitant]
  5. TIOTROPIUM BROMIDE [Concomitant]
  6. ASPIRIN [Concomitant]
  7. MONTELUKAST SODIUM [Concomitant]
  8. PANTOPRAZOLE [Concomitant]

REACTIONS (4)
  - Pneumonia [None]
  - Cough [None]
  - Hypertension [None]
  - Heart rate increased [None]
